FAERS Safety Report 7818238-X (Version None)
Quarter: 2011Q4

REPORT INFORMATION
  Report Type: 
  Country: None (occurrence: None)
  Receive Date: 20111017
  Receipt Date: 20111004
  Transmission Date: 20120403
  Serious: Yes (Hospitalization)
  Sender: FDA-Public Use
  Company Number: US-BAYER-2011-095613

PATIENT
  Age: 68 Year
  Sex: Male
  Weight: 77 kg

DRUGS (4)
  1. ASPIRIN [Suspect]
     Dosage: 1 DF, QD
     Route: 048
     Dates: start: 20110401, end: 20110615
  2. ANTIHYPERTENSIVES [Concomitant]
     Dosage: 1 DF, QD
     Dates: start: 19960101
  3. HYTRIN [Concomitant]
     Dosage: 1 DF, QD
     Route: 048
     Dates: start: 20110601
  4. ATENOLOL [Concomitant]
     Dosage: 1 DF, QD
     Route: 048
     Dates: start: 19960101

REACTIONS (1)
  - GASTRIC HAEMORRHAGE [None]
